FAERS Safety Report 4560077-X (Version None)
Quarter: 2005Q1

REPORT INFORMATION
  Report Type: 
  Country: None (occurrence: None)
  Receive Date: 20050124
  Receipt Date: 20050112
  Transmission Date: 20050727
  Serious: Yes (Other)
  Sender: FDA-Public Use
  Company Number: 2005011724

PATIENT
  Sex: Female
  Weight: 82.1011 kg

DRUGS (3)
  1. COOL MINT LISTERINE (MENTHOL, METHYL SALICYLATE, EUCALYPTOL, THYMOL) [Suspect]
     Indication: DENTAL DISORDER PROPHYLAXIS
     Dosage: AS RECOMMENDED, BID, ORAL TOPICAL
     Route: 048
  2. SERETIDE MITE (FLUTICASONE PROPIONATE, SALMETEROL XNAFOAGTE) [Concomitant]
  3. MONTELUKAST SODIUM (MONTELUKAST SODIUM) [Concomitant]

REACTIONS (1)
  - LUNG NEOPLASM MALIGNANT [None]
